FAERS Safety Report 24538429 (Version 1)
Quarter: 2024Q4

REPORT INFORMATION
  Report Type: Spontaneous
  Country: US (occurrence: US)
  Receive Date: 20241023
  Receipt Date: 20241023
  Transmission Date: 20250115
  Serious: Yes (Hospitalization, Other)
  Sender: ACCORD
  Company Number: US-Accord-450937

PATIENT
  Age: 48 Year
  Sex: Male

DRUGS (3)
  1. FUROSEMIDE [Suspect]
     Active Substance: FUROSEMIDE
     Indication: Generalised oedema
  2. OLMESARTAN [Concomitant]
     Active Substance: OLMESARTAN
     Indication: Glomerulonephritis membranous
     Dosage: FOR A YEAR
  3. PREDNISONE [Concomitant]
     Active Substance: PREDNISONE
     Indication: Glomerulonephritis membranous
     Dosage: FOR A YEAR

REACTIONS (3)
  - Pancreatitis acute [Recovered/Resolved]
  - Organ failure [Recovered/Resolved]
  - Renal failure [Recovered/Resolved]
